FAERS Safety Report 5075978-6 (Version None)
Quarter: 2006Q3

REPORT INFORMATION
  Report Type: 
  Country: None (occurrence: None)
  Receive Date: 20060806
  Receipt Date: 20060806
  Transmission Date: 20061208
  Serious: Yes (Other)
  Sender: FDA-Public Use
  Company Number: None

PATIENT
  Sex: Female
  Weight: 64.7 kg

DRUGS (2)
  1. GEMCITABINE [Suspect]
     Indication: ANGIOSARCOMA
     Dosage: 800MG/M2 D1, D8 IV
     Route: 042
     Dates: start: 20060711, end: 20060718
  2. CAPECITABINE [Suspect]
     Indication: ANGIOSARCOMA
     Dosage: 500MG/M2 D1-D14 PO
     Route: 048
     Dates: start: 20060711, end: 20060725

REACTIONS (2)
  - LEUKOPENIA [None]
  - NEUTROPENIA [None]
